FAERS Safety Report 20360264 (Version 3)
Quarter: 2022Q1

REPORT INFORMATION
  Report Type: Spontaneous
  Country: JP (occurrence: JP)
  Receive Date: 20220121
  Receipt Date: 20220325
  Transmission Date: 20220423
  Serious: Yes (Other)
  Sender: FDA-Public Use
  Company Number: ALC2022JP000564

PATIENT
  Age: 43 Year
  Sex: Male

DRUGS (1)
  1. PATANOL [Suspect]
     Active Substance: OLOPATADINE HYDROCHLORIDE
     Indication: Conjunctivitis allergic
     Dosage: TOTAL DOSE 10 ML
     Route: 047
     Dates: start: 20210326, end: 202105

REACTIONS (2)
  - Alopecia areata [Not Recovered/Not Resolved]
  - Alopecia universalis [Unknown]

NARRATIVE: CASE EVENT DATE: 20210601
